FAERS Safety Report 24975973 (Version 1)
Quarter: 2025Q1

REPORT INFORMATION
  Report Type: Report from Study
  Country: US (occurrence: None)
  Receive Date: 20250217
  Receipt Date: 20250217
  Transmission Date: 20250408
  Serious: No
  Sender: ALEXION PHARMACEUTICALS
  Company Number: US-AstraZeneca-2015SE52547

PATIENT

DRUGS (3)
  1. NEXIUM [Suspect]
     Active Substance: ESOMEPRAZOLE MAGNESIUM
     Dosage: 40 MILLIGRAM, QD
  2. NEXIUM [Suspect]
     Active Substance: ESOMEPRAZOLE MAGNESIUM
     Dosage: 40 MILLIGRAM, BID
  3. LOSARTAN [Concomitant]
     Active Substance: LOSARTAN

REACTIONS (4)
  - Gastrooesophageal reflux disease [Unknown]
  - Bronchitis [Unknown]
  - Hypoacusis [Unknown]
  - Off label use [Unknown]
